FAERS Safety Report 16972817 (Version 1)
Quarter: 2019Q4

REPORT INFORMATION
  Report Type: Spontaneous
  Country: US (occurrence: US)
  Receive Date: 20191030
  Receipt Date: 20191030
  Transmission Date: 20200122
  Serious: Yes (Other)
  Sender: FDA-Public Use
  Company Number: US-ACCORD-073091

PATIENT
  Age: 60 Year
  Sex: Female

DRUGS (1)
  1. ESCITALOPRAM ACCORD [Suspect]
     Active Substance: ESCITALOPRAM OXALATE
     Indication: PRODUCT USED FOR UNKNOWN INDICATION
     Dosage: STRENGTH: 10 MG

REACTIONS (7)
  - Anger [Recovered/Resolved]
  - Crying [Recovered/Resolved]
  - Diarrhoea [Recovered/Resolved]
  - Dyspepsia [Recovered/Resolved]
  - Emotional disorder [Recovered/Resolved]
  - Serotonin syndrome [Unknown]
  - Palpitations [Recovered/Resolved]
